FAERS Safety Report 7035646-8 (Version None)
Quarter: 2010Q4

REPORT INFORMATION
  Report Type: 
  Country: None (occurrence: None)
  Receive Date: 20101008
  Receipt Date: 20101004
  Transmission Date: 20110411
  Serious: Yes (Hospitalization)
  Sender: FDA-Public Use
  Company Number: IE-CVT-100622

PATIENT

DRUGS (5)
  1. RANEXA [Suspect]
     Indication: PRODUCT USED FOR UNKNOWN INDICATION
     Dosage: 375 MG, QD
     Route: 048
     Dates: start: 20100501, end: 20100101
  2. COAPROVEL [Suspect]
     Indication: PRODUCT USED FOR UNKNOWN INDICATION
  3. OMEPRAZOLE [Concomitant]
  4. NICORANDIL [Concomitant]
  5. BISOPROLOL FUMARATE [Concomitant]

REACTIONS (1)
  - HYPONATRAEMIA [None]
